FAERS Safety Report 8056000-6 (Version None)
Quarter: 2011Q4

REPORT INFORMATION
  Report Type: 
  Country: None (occurrence: None)
  Receive Date: 20111216
  Receipt Date: 20110127
  Transmission Date: 20120403
  Serious: Yes (Other)
  Sender: FDA-Public Use
  Company Number: 264901USA

PATIENT
  Age: 38 Year
  Sex: Female
  Weight: 65.318 kg

DRUGS (1)
  1. PARAGARD T 380A [Suspect]
     Indication: CONTRACEPTION
     Dosage: I.U.
     Dates: start: 20110124, end: 20110124

REACTIONS (2)
  - ABDOMINAL PAIN [None]
  - UTERINE PERFORATION [None]
